FAERS Safety Report 22205553 (Version 1)
Quarter: 2023Q2

REPORT INFORMATION
  Report Type: Spontaneous
  Country: JP (occurrence: JP)
  Receive Date: 20230413
  Receipt Date: 20230413
  Transmission Date: 20230722
  Serious: Yes (Other)
  Sender: FDA-Public Use
  Company Number: JP-ASTELLAS-2023JP003552

PATIENT
  Age: 6 Decade
  Sex: Female

DRUGS (1)
  1. SOLIFENACIN [Suspect]
     Active Substance: SOLIFENACIN
     Indication: Hypertonic bladder
     Dosage: 5 MG/DAY, UNKNOWN FREQ.
     Route: 048

REACTIONS (5)
  - Restlessness [Recovering/Resolving]
  - Abnormal behaviour [Recovering/Resolving]
  - Delirium [Recovering/Resolving]
  - Psychiatric symptom [Recovering/Resolving]
  - Drug level increased [Unknown]
